FAERS Safety Report 8370475-4 (Version None)
Quarter: 2012Q2

REPORT INFORMATION
  Report Type: 
  Country: None (occurrence: None)
  Receive Date: 20120518
  Receipt Date: 20120517
  Transmission Date: 20120825
  Serious: Yes (Other)
  Sender: FDA-Public Use
  Company Number: PHEH2011US010338

PATIENT
  Sex: Female
  Weight: 54.422 kg

DRUGS (4)
  1. DIVALPROEX SODIUM [Concomitant]
  2. VITAMIN D [Concomitant]
  3. GILENYA [Suspect]
     Dosage: 0.5 MG, QD
     Route: 048
     Dates: start: 20111121
  4. PAROXETINE [Concomitant]

REACTIONS (5)
  - FEELING ABNORMAL [None]
  - PANIC ATTACK [None]
  - HYPOAESTHESIA [None]
  - FATIGUE [None]
  - ANXIETY [None]
